FAERS Safety Report 14672103 (Version 7)
Quarter: 2018Q2

REPORT INFORMATION
  Report Type: Report from Study
  Country: PE (occurrence: PE)
  Receive Date: 20180323
  Receipt Date: 20180514
  Transmission Date: 20180711
  Serious: Yes (Life-Threatening, Hospitalization)
  Sender: FDA-Public Use
  Company Number: PE-ASTRAZENECA-2018SE33441

PATIENT
  Age: 68 Year
  Sex: Female

DRUGS (50)
  1. ACALABRUTINIB. [Suspect]
     Active Substance: ACALABRUTINIB
     Indication: MANTLE CELL LYMPHOMA
     Route: 048
     Dates: start: 20180406, end: 20180502
  2. BENDAMUSTINE [Suspect]
     Active Substance: BENDAMUSTINE
     Indication: MANTLE CELL LYMPHOMA
     Dosage: 130.0MG ONCE/SINGLE ADMINISTRATION
     Route: 042
     Dates: start: 20180503, end: 20180503
  3. DEXAMETHASONE. [Concomitant]
     Active Substance: DEXAMETHASONE
     Indication: PREMEDICATION
     Route: 042
     Dates: start: 20180309, end: 20180310
  4. ONDANSETRON [Concomitant]
     Active Substance: ONDANSETRON
     Indication: PREMEDICATION
     Route: 048
     Dates: start: 20180311, end: 20180312
  5. RANITIDINE. [Concomitant]
     Active Substance: RANITIDINE
     Indication: PREMEDICATION
     Route: 042
     Dates: start: 20180311, end: 20180312
  6. RANITIDINE. [Concomitant]
     Active Substance: RANITIDINE
     Indication: PREMEDICATION
     Dosage: 50.0MG ONCE/SINGLE ADMINISTRATION
     Route: 042
     Dates: start: 20180406, end: 20180407
  7. LACTULOSE. [Concomitant]
     Active Substance: LACTULOSE
     Indication: SUPPORTIVE CARE
     Dosage: 15 ML, TWICE DAILY ONLY IF THERE WERE CONSTIPATION
     Route: 048
     Dates: start: 20180406, end: 20180406
  8. SODIUM CHLORIDE. [Concomitant]
     Active Substance: SODIUM CHLORIDE
     Indication: PREMEDICATION
     Route: 042
     Dates: start: 20180312, end: 20180314
  9. RITUXIMAB. [Suspect]
     Active Substance: RITUXIMAB
     Indication: MANTLE CELL LYMPHOMA
     Dosage: 536.25MG ONCE/SINGLE ADMINISTRATION
     Route: 042
     Dates: start: 20180406, end: 20180406
  10. CHLORPHENAMINE [Concomitant]
     Active Substance: CHLORPHENIRAMINE MALEATE
     Indication: PREMEDICATION
     Dosage: 10.0MG ONCE/SINGLE ADMINISTRATION
     Route: 042
     Dates: start: 20180406, end: 20180407
  11. RANITIDINE. [Concomitant]
     Active Substance: RANITIDINE
     Indication: PREMEDICATION
     Route: 042
     Dates: start: 20180309, end: 20180310
  12. LACTULOSE. [Concomitant]
     Active Substance: LACTULOSE
     Indication: SUPPORTIVE CARE
     Route: 048
     Dates: start: 20180309, end: 20180311
  13. ALLOPURINOL. [Concomitant]
     Active Substance: ALLOPURINOL
     Indication: RENAL DISORDER
     Route: 048
     Dates: start: 20180309, end: 20180315
  14. ALLOPURINOL. [Concomitant]
     Active Substance: ALLOPURINOL
     Indication: RENAL DISORDER
     Route: 048
     Dates: start: 20180313, end: 20180315
  15. ACALABRUTINIB. [Suspect]
     Active Substance: ACALABRUTINIB
     Indication: MANTLE CELL LYMPHOMA
     Route: 048
     Dates: start: 20180309, end: 20180405
  16. BENDAMUSTINE [Suspect]
     Active Substance: BENDAMUSTINE
     Indication: MANTLE CELL LYMPHOMA
     Dosage: 130.0MG ONCE/SINGLE ADMINISTRATION
     Route: 042
     Dates: start: 20180504, end: 20180504
  17. RANITIDINE. [Concomitant]
     Active Substance: RANITIDINE
     Indication: PREMEDICATION
     Route: 042
     Dates: start: 20180313, end: 20180315
  18. ALLOPURINOL. [Concomitant]
     Active Substance: ALLOPURINOL
     Indication: PROPHYLAXIS
     Route: 048
     Dates: start: 20180312, end: 20180313
  19. ALLOPURINOL. [Concomitant]
     Active Substance: ALLOPURINOL
     Indication: SUPPORTIVE CARE
     Route: 048
     Dates: start: 20180313, end: 20180315
  20. CALCIUM GLUCONATE. [Concomitant]
     Active Substance: CALCIUM GLUCONATE
     Indication: HYPOCALCAEMIA
     Route: 042
     Dates: start: 20180312, end: 20180314
  21. LEVOTIROXINE [Concomitant]
     Active Substance: LEVOTHYROXINE
     Indication: THYROIDECTOMY
     Route: 048
     Dates: start: 201304
  22. CHLORPHENAMINE [Concomitant]
     Active Substance: CHLORPHENIRAMINE MALEATE
     Indication: PREMEDICATION
     Dosage: 10.0MG ONCE/SINGLE ADMINISTRATION
     Route: 042
     Dates: start: 20180315, end: 20180315
  23. DEXAMETHASONE. [Concomitant]
     Active Substance: DEXAMETHASONE
     Indication: PREMEDICATION
     Dosage: 4.0MG ONCE/SINGLE ADMINISTRATION
     Route: 042
     Dates: start: 20180315, end: 20180315
  24. ONDANSETRON [Concomitant]
     Active Substance: ONDANSETRON
     Indication: PREMEDICATION
     Route: 042
     Dates: start: 20180309, end: 20180310
  25. ONDANSETRON [Concomitant]
     Active Substance: ONDANSETRON
     Indication: PREMEDICATION
     Route: 042
     Dates: start: 20180311, end: 20180313
  26. ONDANSETRON [Concomitant]
     Active Substance: ONDANSETRON
     Indication: PREMEDICATION
     Dosage: 16.0MG ONCE/SINGLE ADMINISTRATION
     Route: 048
     Dates: start: 20180406, end: 20180407
  27. ALLOPURINOL. [Concomitant]
     Active Substance: ALLOPURINOL
     Indication: SUPPORTIVE CARE
     Route: 048
     Dates: start: 20180309, end: 20180315
  28. DEXTROSA [Concomitant]
     Indication: HYPOCALCAEMIA
     Route: 042
     Dates: start: 20180312, end: 20180314
  29. INSULIN [Concomitant]
     Active Substance: INSULIN NOS
     Indication: HYPERKALAEMIA
     Route: 042
     Dates: start: 20180312, end: 20180314
  30. SODIUM CHLORIDE. [Concomitant]
     Active Substance: SODIUM CHLORIDE
     Indication: PREMEDICATION
     Route: 042
     Dates: start: 20180312, end: 20180315
  31. BENDAMUSTINE [Suspect]
     Active Substance: BENDAMUSTINE
     Indication: MANTLE CELL LYMPHOMA
     Dosage: 135.0MG ONCE/SINGLE ADMINISTRATION
     Route: 042
     Dates: start: 20180310, end: 20180310
  32. DEXAMETHASONE. [Concomitant]
     Active Substance: DEXAMETHASONE
     Indication: PREMEDICATION
     Dosage: 16.0MG ONCE/SINGLE ADMINISTRATION
     Route: 042
     Dates: start: 20180406, end: 20180407
  33. ALLOPURINOL. [Concomitant]
     Active Substance: ALLOPURINOL
     Indication: PROPHYLAXIS
     Route: 048
     Dates: start: 20180313, end: 20180315
  34. SODIUM CHLORIDE. [Concomitant]
     Active Substance: SODIUM CHLORIDE
     Indication: PREMEDICATION
     Route: 055
     Dates: start: 20180312, end: 20180314
  35. ACALABRUTINIB. [Suspect]
     Active Substance: ACALABRUTINIB
     Indication: MANTLE CELL LYMPHOMA
     Route: 048
     Dates: start: 20180503
  36. BENDAMUSTINE [Suspect]
     Active Substance: BENDAMUSTINE
     Indication: MANTLE CELL LYMPHOMA
     Dosage: 135.0MG ONCE/SINGLE ADMINISTRATION
     Route: 042
     Dates: start: 20180309, end: 20180309
  37. BENDAMUSTINE [Suspect]
     Active Substance: BENDAMUSTINE
     Indication: MANTLE CELL LYMPHOMA
     Dosage: 128.7MG ONCE/SINGLE ADMINISTRATION
     Route: 042
     Dates: start: 20180406, end: 20180406
  38. BENDAMUSTINE [Suspect]
     Active Substance: BENDAMUSTINE
     Indication: MANTLE CELL LYMPHOMA
     Dosage: 128.7MG ONCE/SINGLE ADMINISTRATION
     Route: 042
     Dates: start: 20180407, end: 20180407
  39. SODIUM CHLORIDE. [Concomitant]
     Active Substance: SODIUM CHLORIDE
     Indication: PREMEDICATION
     Route: 055
     Dates: start: 20180406, end: 20180407
  40. POLIETILENGLICOL 3350 [Concomitant]
     Indication: CONSTIPATION
     Route: 048
     Dates: start: 20180313, end: 20180315
  41. RITUXIMAB. [Suspect]
     Active Substance: RITUXIMAB
     Indication: MANTLE CELL LYMPHOMA
     Dosage: 562.5MG ONCE/SINGLE ADMINISTRATION
     Route: 042
     Dates: start: 20180309, end: 20180309
  42. RITUXIMAB. [Suspect]
     Active Substance: RITUXIMAB
     Indication: MANTLE CELL LYMPHOMA
     Dosage: 540.0MG ONCE/SINGLE ADMINISTRATION
     Route: 042
     Dates: start: 20180503, end: 20180503
  43. ALLOPURINOL. [Concomitant]
     Active Substance: ALLOPURINOL
     Indication: PROPHYLAXIS
     Route: 048
     Dates: start: 20180309, end: 20180315
  44. ALLOPURINOL. [Concomitant]
     Active Substance: ALLOPURINOL
     Indication: RENAL DISORDER
     Route: 048
     Dates: start: 20180312, end: 20180313
  45. DEXTROSA [Concomitant]
     Indication: HYPERKALAEMIA
     Route: 042
     Dates: start: 20180312, end: 20180314
  46. CHLORPHENAMINE [Concomitant]
     Active Substance: CHLORPHENIRAMINE MALEATE
     Indication: PREMEDICATION
     Route: 042
     Dates: start: 20180309, end: 20180310
  47. ONDANSETRON [Concomitant]
     Active Substance: ONDANSETRON
     Indication: PREMEDICATION
     Dosage: 4 MG, TWICE DAILY ONLY IF THERE WERE PRESENCE OF VOMITING OR NAUSEA ONCE/SINGLE ADMINISTRATION
     Route: 048
     Dates: start: 20180406, end: 20180409
  48. ALLOPURINOL. [Concomitant]
     Active Substance: ALLOPURINOL
     Indication: SUPPORTIVE CARE
     Route: 048
     Dates: start: 20180312, end: 20180313
  49. FENOTEROL [Concomitant]
     Active Substance: FENOTEROL
     Indication: PRODUCT USED FOR UNKNOWN INDICATION
     Route: 055
     Dates: start: 20180312, end: 20180314
  50. SODIUM CHLORIDE. [Concomitant]
     Active Substance: SODIUM CHLORIDE
     Indication: PREMEDICATION
     Route: 042
     Dates: start: 20180309, end: 20180310

REACTIONS (2)
  - Anaemia [Recovered/Resolved]
  - Hyperkalaemia [Recovered/Resolved]

NARRATIVE: CASE EVENT DATE: 20180312
